FAERS Safety Report 24876123 (Version 1)
Quarter: 2025Q1

REPORT INFORMATION
  Report Type: Spontaneous
  Country: US (occurrence: US)
  Receive Date: 20250123
  Receipt Date: 20250123
  Transmission Date: 20250408
  Serious: No
  Sender: AUROBINDO
  Company Number: US-AUROBINDO-AUR-APL-2024-004107

PATIENT
  Age: 18 Year
  Sex: Male
  Weight: 73.482 kg

DRUGS (1)
  1. CEFDINIR [Suspect]
     Active Substance: CEFDINIR
     Indication: Sinusitis
     Dosage: 6 MILLILITER, TWO TIMES A DAY
     Route: 048
     Dates: start: 20240119, end: 20240121

REACTIONS (2)
  - Product storage error [Unknown]
  - Product administration error [Unknown]
